FAERS Safety Report 23417060 (Version 1)
Quarter: 2024Q1

REPORT INFORMATION
  Report Type: Report from Study
  Country: JP (occurrence: JP)
  Receive Date: 20240118
  Receipt Date: 20240118
  Transmission Date: 20240410
  Serious: Yes (Death, Other)
  Sender: FDA-Public Use
  Company Number: JP-PFIZER INC-202400013725

PATIENT
  Age: 60 Year
  Sex: Male

DRUGS (9)
  1. TOFACITINIB CITRATE [Suspect]
     Active Substance: TOFACITINIB CITRATE
     Indication: Interstitial lung disease
     Dosage: 5 MG, 2X/DAY (STARTED ON DAY 10 OF TRIPLE THERAPY)
  2. TOFACITINIB CITRATE [Suspect]
     Active Substance: TOFACITINIB CITRATE
     Indication: Anti-melanoma differentiation-associated protein 5 antibody positive
  3. TOFACITINIB CITRATE [Suspect]
     Active Substance: TOFACITINIB CITRATE
     Indication: Dermatomyositis
  4. CYCLOPHOSPHAMIDE [Suspect]
     Active Substance: CYCLOPHOSPHAMIDE
     Indication: Interstitial lung disease
     Route: 042
  5. CYCLOPHOSPHAMIDE [Suspect]
     Active Substance: CYCLOPHOSPHAMIDE
     Indication: Anti-melanoma differentiation-associated protein 5 antibody positive
  6. CYCLOPHOSPHAMIDE [Suspect]
     Active Substance: CYCLOPHOSPHAMIDE
     Indication: Dermatomyositis
  7. CYCLOSPORINE [Suspect]
     Active Substance: CYCLOSPORINE
     Indication: Interstitial lung disease
  8. CYCLOSPORINE [Suspect]
     Active Substance: CYCLOSPORINE
     Indication: Anti-melanoma differentiation-associated protein 5 antibody positive
  9. CYCLOSPORINE [Suspect]
     Active Substance: CYCLOSPORINE
     Indication: Dermatomyositis

REACTIONS (5)
  - Muscle haemorrhage [Fatal]
  - Respiratory failure [Fatal]
  - Cytomegalovirus infection reactivation [Unknown]
  - Pneumomediastinum [Unknown]
  - Interstitial lung disease [Unknown]
